FAERS Safety Report 12320557 (Version 1)
Quarter: 2016Q2

REPORT INFORMATION
  Report Type: Spontaneous
  Country: US (occurrence: US)
  Receive Date: 20160429
  Receipt Date: 20160429
  Transmission Date: 20160815
  Serious: Yes (Other)
  Sender: FDA-Public Use
  Company Number: US-AMGEN-USASP2016052515

PATIENT
  Age: 85 Year
  Sex: Female

DRUGS (6)
  1. PROLIA [Suspect]
     Active Substance: DENOSUMAB
     Dosage: UNK UNK, UNK
     Route: 065
  2. PROLIA [Suspect]
     Active Substance: DENOSUMAB
     Dosage: UNK UNK, UNK
     Route: 065
  3. PROLIA [Suspect]
     Active Substance: DENOSUMAB
     Indication: PRODUCT USED FOR UNKNOWN INDICATION
     Dosage: UNK UNK, UNK
     Route: 065
     Dates: start: 20130924
  4. PROLIA [Suspect]
     Active Substance: DENOSUMAB
     Dosage: UNK, UNK
     Route: 065
  5. PROLIA [Suspect]
     Active Substance: DENOSUMAB
     Dosage: UNK UNK, UNK
     Route: 065
  6. PROLIA [Suspect]
     Active Substance: DENOSUMAB
     Dosage: UNK UNK, UNK
     Route: 065

REACTIONS (3)
  - Stress fracture [Unknown]
  - Pain [Unknown]
  - Femur fracture [Unknown]
